FAERS Safety Report 12409126 (Version 1)
Quarter: 2016Q2

REPORT INFORMATION
  Report Type: Report from Study
  Country: US (occurrence: US)
  Receive Date: 20160526
  Receipt Date: 20160526
  Transmission Date: 20160815
  Serious: Yes (Hospitalization, Other)
  Sender: FDA-Public Use
  Company Number: US-ABBVIE-16P-163-1636782-00

PATIENT
  Age: 60 Year
  Sex: Male

DRUGS (4)
  1. VENCLEXTA [Suspect]
     Active Substance: VENETOCLAX
     Dosage: DAILY FOR 5 DAYS
     Route: 048
     Dates: start: 20160505, end: 20160509
  2. VENCLEXTA [Suspect]
     Active Substance: VENETOCLAX
     Indication: CHRONIC LYMPHOCYTIC LEUKAEMIA
     Route: 048
     Dates: start: 20160503, end: 20160503
  3. VENCLEXTA [Suspect]
     Active Substance: VENETOCLAX
     Dosage: DAILY FOR 7 DAYS
     Route: 048
     Dates: start: 20160510, end: 20160516
  4. VENCLEXTA [Suspect]
     Active Substance: VENETOCLAX
     Route: 048
     Dates: start: 20160517

REACTIONS (17)
  - Oedema peripheral [Recovering/Resolving]
  - Electrolyte imbalance [Recovering/Resolving]
  - Cardiac murmur [Recovering/Resolving]
  - Tumour lysis syndrome [Recovering/Resolving]
  - Acute left ventricular failure [Recovering/Resolving]
  - Hyperphosphataemia [Recovering/Resolving]
  - Jugular vein distension [Recovering/Resolving]
  - Renal impairment [Recovering/Resolving]
  - Abdominal distension [Recovering/Resolving]
  - Chronic kidney disease [Recovering/Resolving]
  - Periorbital oedema [Recovering/Resolving]
  - Hyperkalaemia [Recovering/Resolving]
  - Asthenia [Recovering/Resolving]
  - Breath sounds abnormal [Recovering/Resolving]
  - Rales [Recovering/Resolving]
  - Cough [Recovering/Resolving]
  - Decreased appetite [Recovering/Resolving]

NARRATIVE: CASE EVENT DATE: 20160513
